FAERS Safety Report 8055977-2 (Version None)
Quarter: 2012Q1

REPORT INFORMATION
  Report Type: 
  Country: None (occurrence: None)
  Receive Date: 20120119
  Receipt Date: 20120111
  Transmission Date: 20120608
  Serious: Yes (Hospitalization, Other)
  Sender: FDA-Public Use
  Company Number: FR-ROCHE-1029273

PATIENT
  Sex: Male

DRUGS (7)
  1. CYCLOPHOSPHAMIDE [Concomitant]
     Dates: start: 20091001, end: 20091003
  2. MABTHERA [Suspect]
     Indication: CHRONIC LYMPHOCYTIC LEUKAEMIA
     Route: 041
     Dates: start: 20091001, end: 20091001
  3. PENTACARINAT [Concomitant]
     Dates: start: 20091001
  4. FLUDARA [Concomitant]
     Dates: start: 20091001, end: 20091003
  5. VALACYCLOVIR HYDROCHLORIDE [Concomitant]
     Dates: start: 20090629
  6. ATENOLOL [Concomitant]
  7. CYCLOPHOSPHAMIDE [Suspect]
     Indication: CHRONIC LYMPHOCYTIC LEUKAEMIA
     Route: 041
     Dates: start: 20110801, end: 20110801

REACTIONS (2)
  - ANAEMIA [None]
  - LUNG SQUAMOUS CELL CARCINOMA STAGE UNSPECIFIED [None]
